FAERS Safety Report 4303150-3 (Version None)
Quarter: 2004Q1

REPORT INFORMATION
  Report Type: 
  Country: None (occurrence: None)
  Receive Date: 20040223
  Receipt Date: 20030317
  Transmission Date: 20041129
  Serious: Yes (Hospitalization, Other)
  Sender: FDA-Public Use
  Company Number: KII-2003-0007044

PATIENT
  Age: 53 Year
  Sex: Male

DRUGS (8)
  1. MORPHINE SULFATE [Suspect]
     Dosage: ORAL
     Route: 048
     Dates: start: 20030317
  2. EFFEXOR [Suspect]
     Dosage: ORAL
     Route: 048
  3. LOTENSIN [Suspect]
     Dosage: ORAL
     Route: 048
  4. FUROSEMIDE [Suspect]
     Dosage: ORAL
     Route: 048
  5. GEMFIBROZIL [Suspect]
     Dosage: ORAL
     Route: 048
  6. RANITIDINE [Suspect]
     Dosage: ORAL
     Route: 048
  7. ACETYLSALICYLIC ACID SRT [Suspect]
  8. BENZODIAZEPINE DERIVATIVES () [Suspect]

REACTIONS (14)
  - AGGRESSION [None]
  - BLOOD CREATINE PHOSPHOKINASE INCREASED [None]
  - BLOOD CREATINE PHOSPHOKINASE MB INCREASED [None]
  - BLOOD SODIUM DECREASED [None]
  - CONFUSIONAL STATE [None]
  - DEPRESSED LEVEL OF CONSCIOUSNESS [None]
  - DISORIENTATION [None]
  - HYPERHIDROSIS [None]
  - MYOGLOBIN BLOOD INCREASED [None]
  - PNEUMONIA [None]
  - RESPIRATORY RATE INCREASED [None]
  - TACHYCARDIA [None]
  - TOXICOLOGIC TEST ABNORMAL [None]
  - WHITE BLOOD CELL COUNT INCREASED [None]
